FAERS Safety Report 8008693-7 (Version None)
Quarter: 2011Q4

REPORT INFORMATION
  Report Type: 
  Country: None (occurrence: None)
  Receive Date: 20111227
  Receipt Date: 20111219
  Transmission Date: 20120403
  Serious: Yes (Hospitalization)
  Sender: FDA-Public Use
  Company Number: JP-MERCK-1111USA03836

PATIENT
  Age: 73 Year
  Sex: Male

DRUGS (4)
  1. ZITHROMAX [Suspect]
     Indication: BACTERIAL INFECTION
     Route: 048
     Dates: start: 20110214, end: 20110216
  2. PEPCID RPD [Suspect]
     Indication: GASTRITIS
     Route: 048
     Dates: start: 20110214, end: 20110218
  3. INDOMETHACIN [Suspect]
     Indication: PYREXIA
     Route: 048
     Dates: start: 20110214, end: 20110218
  4. ZITHROMAX [Suspect]
     Indication: BRONCHITIS
     Route: 048
     Dates: start: 20110214, end: 20110216

REACTIONS (2)
  - LIVER DISORDER [None]
  - DRUG ERUPTION [None]
